FAERS Safety Report 5471799-0 (Version None)
Quarter: 2007Q3

REPORT INFORMATION
  Report Type: 
  Country: None (occurrence: None)
  Receive Date: 20070928
  Receipt Date: 20070525
  Transmission Date: 20080115
  Serious: No
  Sender: FDA-Public Use
  Company Number: US-BRISTOL-MYERS SQUIBB COMPANY-13798178

PATIENT
  Age: 5 Decade
  Sex: Female
  Weight: 71 kg

DRUGS (5)
  1. DEFINITY [Suspect]
     Indication: STRESS ECHOCARDIOGRAM
     Dosage: DILUTED IN THE FORM OF 3 INJECTIONS
     Route: 042
  2. CALTRATE [Concomitant]
  3. FOLIC ACID [Concomitant]
  4. VITAMIN B-12 [Concomitant]
  5. VITAMIN B6 [Concomitant]

REACTIONS (1)
  - MUSCLE SPASMS [None]
